FAERS Safety Report 8338142-0 (Version None)
Quarter: 2012Q2

REPORT INFORMATION
  Report Type: 
  Country: None (occurrence: None)
  Receive Date: 20120504
  Receipt Date: 20120426
  Transmission Date: 20120825
  Serious: Yes (Other)
  Sender: FDA-Public Use
  Company Number: DE-JNJFOC-20120501266

PATIENT
  Sex: Male

DRUGS (2)
  1. DOLORMIN EXTRA [Suspect]
     Indication: PRODUCT USED FOR UNKNOWN INDICATION
     Dosage: 1-2 TABLETS PER MONTH
     Route: 048
  2. DOLORMIN EXTRA [Suspect]
     Route: 048

REACTIONS (1)
  - RASH PUSTULAR [None]
